FAERS Safety Report 8139908-2 (Version None)
Quarter: 2012Q1

REPORT INFORMATION
  Report Type: 
  Country: None (occurrence: None)
  Receive Date: 20120215
  Receipt Date: 20120210
  Transmission Date: 20120608
  Serious: Yes (Other)
  Sender: FDA-Public Use
  Company Number: PL-ROCHE-1037106

PATIENT
  Age: 40 Year
  Sex: Female
  Weight: 56.7 kg

DRUGS (1)
  1. VEMURAFENIB [Suspect]
     Indication: MALIGNANT MELANOMA
     Route: 048
     Dates: start: 20120103

REACTIONS (1)
  - ACANTHOSIS [None]
